FAERS Safety Report 6787938-5 (Version None)
Quarter: 2010Q2

REPORT INFORMATION
  Report Type: 
  Country: None (occurrence: None)
  Receive Date: 20100623
  Receipt Date: 20071106
  Transmission Date: 20101027
  Serious: Yes (Other)
  Sender: FDA-Public Use
  Company Number: US-PFIZER INC-2007093842

PATIENT
  Age: 27 Year
  Sex: Female

DRUGS (2)
  1. SUTENT [Suspect]
     Indication: ADRENAL CARCINOMA
  2. GEMCITABINE HCL [Suspect]
     Indication: ADRENAL CARCINOMA

REACTIONS (1)
  - PULMONARY HAEMORRHAGE [None]
